FAERS Safety Report 23475557 (Version 1)
Quarter: 2024Q1

REPORT INFORMATION
  Report Type: Report from Study
  Country: US (occurrence: US)
  Receive Date: 20240204
  Receipt Date: 20240204
  Transmission Date: 20240409
  Serious: No
  Sender: FDA-Public Use
  Company Number: US-EXELIXIS-CABO-23060044

PATIENT
  Sex: Female

DRUGS (11)
  1. CABOMETYX [Suspect]
     Active Substance: CABOZANTINIB S-MALATE
     Indication: Renal cancer
     Dosage: 20 MG
  2. NIVOLUMAB [Concomitant]
     Active Substance: NIVOLUMAB
  3. IPILIMUMAB [Concomitant]
     Active Substance: IPILIMUMAB
  4. LORATADINE [Concomitant]
     Active Substance: LORATADINE
  5. LOSARTAN [Concomitant]
     Active Substance: LOSARTAN
  6. MAGNESIUM CITRATE [Concomitant]
     Active Substance: MAGNESIUM CITRATE
  7. MELATONIN [Concomitant]
     Active Substance: MELATONIN
  8. MENTAX [Concomitant]
     Active Substance: BUTENAFINE HYDROCHLORIDE
  9. NALTREXONE [Concomitant]
     Active Substance: NALTREXONE
  10. SODIUM CHLORIDE [Concomitant]
     Active Substance: SODIUM CHLORIDE
  11. TYLENOL [Concomitant]
     Active Substance: ACETAMINOPHEN

REACTIONS (4)
  - Dacryostenosis acquired [Unknown]
  - Feeling abnormal [Unknown]
  - Fatigue [Unknown]
  - Dysphonia [Unknown]
